FAERS Safety Report 18744981 (Version 2)
Quarter: 2021Q1

REPORT INFORMATION
  Report Type: Report from Study
  Country: CA (occurrence: CA)
  Receive Date: 20210115
  Receipt Date: 20210128
  Transmission Date: 20210419
  Serious: Yes (Hospitalization)
  Sender: FDA-Public Use
  Company Number: NVSC2021CA006214

PATIENT
  Age: 29 Year
  Sex: Male
  Weight: 53 kg

DRUGS (2)
  1. TRAMETINIB [Suspect]
     Active Substance: TRAMETINIB
     Indication: GLIOMA
     Dosage: 1.5 MG, QD
     Route: 048
     Dates: start: 20210115
  2. TRAMETINIB [Suspect]
     Active Substance: TRAMETINIB
     Indication: NEUROFIBROMATOSIS
     Dosage: 2 MG, QD
     Route: 048
     Dates: start: 20200822, end: 20210105

REACTIONS (5)
  - Staphylococcal skin infection [Recovering/Resolving]
  - Superinfection [Recovering/Resolving]
  - Rash pustular [Recovering/Resolving]
  - Pyrexia [Unknown]
  - Rash [Not Recovered/Not Resolved]

NARRATIVE: CASE EVENT DATE: 20200831
